FAERS Safety Report 8166429-3 (Version None)
Quarter: 2012Q1

REPORT INFORMATION
  Report Type: 
  Country: None (occurrence: None)
  Receive Date: 20120223
  Receipt Date: 20120223
  Transmission Date: 20120608
  Serious: Yes (Hospitalization)
  Sender: FDA-Public Use
  Company Number: None

PATIENT
  Sex: Female

DRUGS (2)
  1. DECITABINE [Suspect]
     Dates: start: 20120213, end: 20120217
  2. LBH589 (IND #101765) [Suspect]
     Dosage: 40 MG
     Dates: start: 20120213, end: 20120224

REACTIONS (3)
  - MALAISE [None]
  - PYREXIA [None]
  - HAEMATURIA [None]
